FAERS Safety Report 5731670-3 (Version None)
Quarter: 2008Q2

REPORT INFORMATION
  Report Type: 
  Country: None (occurrence: None)
  Receive Date: 20080508
  Receipt Date: 20080506
  Transmission Date: 20081010
  Serious: Yes (Other)
  Sender: FDA-Public Use
  Company Number: GB-BRISTOL-MYERS SQUIBB COMPANY-14069371

PATIENT
  Age: 51 Year
  Sex: Female
  Weight: 54 kg

DRUGS (1)
  1. ABILIFY [Suspect]
     Indication: PSYCHOTIC DISORDER
     Dosage: THERAPY INITIATED AT 10MG DAILY ON 15JAN08:INCREASED TO 15MG AFTER 2 WEEKS.
     Route: 048
     Dates: start: 20080101

REACTIONS (2)
  - GASTRIC HAEMORRHAGE [None]
  - VOMITING [None]
